FAERS Safety Report 7866887-5 (Version None)
Quarter: 2011Q4

REPORT INFORMATION
  Report Type: 
  Country: None (occurrence: None)
  Receive Date: 20111026
  Receipt Date: 20111020
  Transmission Date: 20120403
  Serious: Yes (Other)
  Sender: FDA-Public Use
  Company Number: AUR-APL-2011-05224

PATIENT
  Age: 61 Year
  Sex: Female
  Weight: 68 kg

DRUGS (3)
  1. PREMARIN [Concomitant]
  2. AMLODIPINE [Suspect]
     Indication: PRODUCT USED FOR UNKNOWN INDICATION
     Dosage: (5 MG)
     Dates: start: 20090706, end: 20110920
  3. LANSOPRAZOLE [Concomitant]

REACTIONS (1)
  - GINGIVAL ATROPHY [None]
